FAERS Safety Report 16256895 (Version 1)
Quarter: 2019Q2

REPORT INFORMATION
  Report Type: Spontaneous
  Country: IT (occurrence: IT)
  Receive Date: 20190430
  Receipt Date: 20190430
  Transmission Date: 20190711
  Serious: Yes (Hospitalization)
  Sender: FDA-Public Use
  Company Number: IT-MYLANLABS-2019M1039983

PATIENT
  Age: 91 Year
  Sex: Female

DRUGS (6)
  1. CARDICOR [Concomitant]
     Active Substance: BISOPROLOL
  2. AZOPT [Concomitant]
     Active Substance: BRINZOLAMIDE
  3. EPREX [Concomitant]
     Active Substance: ERYTHROPOIETIN
     Dosage: UNK
  4. FUROSEMIDE. [Suspect]
     Active Substance: FUROSEMIDE
     Indication: HYPERTENSION
     Dosage: 4 DOSAGE FORM, QD
     Route: 048
     Dates: start: 20180101, end: 20181007
  5. ZAROXOLYN [Suspect]
     Active Substance: METOLAZONE
     Indication: OEDEMA
     Dosage: 1.5 DOSAGE FORM, QD
     Route: 048
     Dates: start: 20181004, end: 20181007
  6. NITROCOR [Concomitant]
     Active Substance: NITROGLYCERIN
     Dosage: UNK

REACTIONS (2)
  - Hypokalaemia [Unknown]
  - Presyncope [Unknown]

NARRATIVE: CASE EVENT DATE: 20181007
